FAERS Safety Report 10722653 (Version 1)
Quarter: 2015Q1

REPORT INFORMATION
  Report Type: Spontaneous
  Country: PT (occurrence: PT)
  Receive Date: 20150120
  Receipt Date: 20150120
  Transmission Date: 20150721
  Serious: Yes (Hospitalization, Other)
  Sender: FDA-Public Use
  Company Number: PT-GLAXOSMITHKLINE-PT2015005593

PATIENT
  Age: 54 Year
  Sex: Male

DRUGS (3)
  1. SINEMET [Concomitant]
     Active Substance: CARBIDOPA\LEVODOPA
     Indication: PARKINSON^S DISEASE
     Dosage: DAILY DOSE OF 200MG + 50MG FROM 05-11-2008 TO 10-09-2012 AND 600MG + 150MG SINCE 11-09-2012
     Route: 065
     Dates: start: 20081105
  2. XILOPAR [Concomitant]
     Indication: PARKINSON^S DISEASE
     Dosage: BEGIN OF THE THERAPY PREVIOUS TO 2007.
     Route: 065
  3. REQUIP LP [Suspect]
     Active Substance: ROPINIROLE HYDROCHLORIDE
     Indication: PRODUCT USED FOR UNKNOWN INDICATION
     Route: 048
     Dates: start: 20081105, end: 20120910

REACTIONS (2)
  - Aggression [Unknown]
  - Dopamine dysregulation syndrome [Unknown]

NARRATIVE: CASE EVENT DATE: 201207
